FAERS Safety Report 6687736-7 (Version None)
Quarter: 2010Q2

REPORT INFORMATION
  Report Type: 
  Country: None (occurrence: None)
  Receive Date: 20100420
  Receipt Date: 20100415
  Transmission Date: 20101027
  Serious: Yes (Hospitalization)
  Sender: FDA-Public Use
  Company Number: US-BIOGENIDEC-2010BI012731

PATIENT
  Age: 49 Year
  Sex: Female

DRUGS (2)
  1. TYSABRI [Suspect]
     Indication: MULTIPLE SCLEROSIS
     Route: 042
     Dates: start: 20080814, end: 20080814
  2. TYSABRI [Suspect]
     Route: 042
     Dates: start: 20091012

REACTIONS (2)
  - OPPORTUNISTIC INFECTION [None]
  - URINARY TRACT INFECTION [None]
